FAERS Safety Report 6376633-2 (Version None)
Quarter: 2009Q3

REPORT INFORMATION
  Report Type: 
  Country: None (occurrence: None)
  Receive Date: 20090925
  Receipt Date: 20090916
  Transmission Date: 20100115
  Serious: Yes (Hospitalization)
  Sender: FDA-Public Use
  Company Number: US-ABBOTT-09P-163-0597835-00

PATIENT
  Age: 81 Year
  Sex: Female

DRUGS (4)
  1. SYNTHROID [Suspect]
     Indication: HYPOTHYROIDISM
     Dates: start: 19640101
  2. BENICAR [Concomitant]
     Indication: HYPERTENSION
  3. CHOLESTYRAMINE [Concomitant]
     Indication: BLOOD CHOLESTEROL INCREASED
     Dosage: DAILY
  4. PROCARDIA [Concomitant]
     Indication: HYPERTENSION

REACTIONS (4)
  - BLADDER PROLAPSE [None]
  - BONE DENSITY DECREASED [None]
  - CHOKING [None]
  - OSTEOPOROSIS [None]
